FAERS Safety Report 9927171 (Version 1)
Quarter: 2014Q1

REPORT INFORMATION
  Report Type: Spontaneous
  Country: US (occurrence: US)
  Receive Date: 20140226
  Receipt Date: 20140226
  Transmission Date: 20141002
  Serious: No
  Sender: FDA-Public Use
  Company Number: US-AMGEN-USASP2014004576

PATIENT
  Age: 43 Year
  Sex: Female
  Weight: 56 kg

DRUGS (7)
  1. ENBREL [Suspect]
     Indication: PRODUCT USED FOR UNKNOWN INDICATION
     Dosage: 50 MG, QWK
     Route: 058
  2. METHOTREXATE [Concomitant]
     Dosage: 2.5 MG, UNK
     Route: 048
  3. ARAVA [Concomitant]
     Dosage: 10 MG, UNK
     Route: 048
  4. MOBIC [Concomitant]
     Dosage: 75 MG, UNK
     Route: 048
  5. FOLIC ACID [Concomitant]
     Dosage: UNK
     Route: 048
  6. VITAMIN A                          /00056001/ [Concomitant]
     Dosage: UNK
     Route: 048
  7. MEDROL                             /00049601/ [Concomitant]
     Dosage: 4 MG, UNK
     Route: 048

REACTIONS (1)
  - Dermatitis acneiform [Unknown]
